FAERS Safety Report 17150974 (Version 1)
Quarter: 2019Q4

REPORT INFORMATION
  Report Type: Spontaneous
  Country: CN (occurrence: CN)
  Receive Date: 20191213
  Receipt Date: 20191213
  Transmission Date: 20200122
  Serious: Yes (Death, Hospitalization, Other)
  Sender: FDA-Public Use
  Company Number: CN-GLAXOSMITHKLINE-CN2019APC206905

PATIENT

DRUGS (7)
  1. LINEZOLID. [Concomitant]
     Active Substance: LINEZOLID
     Indication: ANTIBIOTIC PROPHYLAXIS
     Dosage: UNK
  2. DIAZEPAM. [Concomitant]
     Active Substance: DIAZEPAM
     Indication: SEIZURE
     Dosage: 2 MG/HR
     Dates: start: 20161223
  3. LAMOTRIGINE. [Suspect]
     Active Substance: LAMOTRIGINE
     Indication: EPILEPSY
     Dosage: UNK
     Route: 048
     Dates: start: 20161119, end: 20161203
  4. FLUCONAZOLE. [Suspect]
     Active Substance: FLUCONAZOLE
     Indication: ANTIFUNGAL PROPHYLAXIS
     Dosage: UNK
     Route: 048
  5. CEFTAZIDIME. [Concomitant]
     Active Substance: CEFTAZIDIME
     Indication: ANTIBIOTIC PROPHYLAXIS
     Dosage: UNK
  6. NYSTATIN. [Suspect]
     Active Substance: NYSTATIN
     Indication: ANTIFUNGAL PROPHYLAXIS
     Dosage: UNK
  7. LEVETIRACETAM. [Concomitant]
     Active Substance: LEVETIRACETAM
     Indication: SEIZURE
     Dosage: UNK
     Route: 048
     Dates: start: 20161223

REACTIONS (33)
  - Drug eruption [Fatal]
  - Aspergillus infection [Fatal]
  - Respiratory failure [Fatal]
  - Conjunctival hyperaemia [Unknown]
  - Pyrexia [Unknown]
  - Breath sounds abnormal [Unknown]
  - Oral mucosa erosion [Unknown]
  - Rash [Unknown]
  - Aphasia [Unknown]
  - Inspiratory capacity increased [Unknown]
  - Metabolic acidosis [Unknown]
  - Stevens-Johnson syndrome [Unknown]
  - Erythema [Unknown]
  - Skin erosion [Unknown]
  - Vulvar erosion [Unknown]
  - Rash maculo-papular [Unknown]
  - Odynophagia [Unknown]
  - Dyspnoea [Unknown]
  - Drug ineffective [Unknown]
  - Toxic epidermal necrolysis [Fatal]
  - Papule [Unknown]
  - Dermatitis [Unknown]
  - Respiratory acidosis [Unknown]
  - Condition aggravated [Unknown]
  - Scab [Unknown]
  - Vision blurred [Unknown]
  - Pleural effusion [Unknown]
  - Swelling face [Unknown]
  - Skin exfoliation [Unknown]
  - Rash papular [Unknown]
  - Oral mucosal erythema [Unknown]
  - Productive cough [Unknown]
  - Lip discolouration [Unknown]

NARRATIVE: CASE EVENT DATE: 20161126
